FAERS Safety Report 13528048 (Version 1)
Quarter: 2017Q2

REPORT INFORMATION
  Report Type: Spontaneous
  Country: AU (occurrence: AU)
  Receive Date: 20170509
  Receipt Date: 20170509
  Transmission Date: 20170830
  Serious: Yes (Hospitalization, Other)
  Sender: FDA-Public Use
  Company Number: AU-MYLANLABS-2017M1027546

PATIENT

DRUGS (9)
  1. OXYCODONE [Suspect]
     Active Substance: OXYCODONE
     Indication: PAIN
     Dosage: 12.5 MG
     Route: 065
  2. ROPIVACAINE [Concomitant]
     Active Substance: ROPIVACAINE
     Indication: ANALGESIC THERAPY
     Dosage: INITIAL DOSE UNKNOWN LATER, GIVEN AT 20 ML OF 0.375%
     Route: 037
  3. ROPIVACAINE [Concomitant]
     Active Substance: ROPIVACAINE
     Dosage: 0.2% INFUSED AT 6 ML/HOUR.
     Route: 050
  4. CLONIDINE. [Suspect]
     Active Substance: CLONIDINE
     Indication: PRODUCT USED FOR UNKNOWN INDICATION
     Dosage: 150 MICROG; IN THE SCIATIC NERVE CATHETER.
     Route: 065
  5. BUPRENORPHINE. [Suspect]
     Active Substance: BUPRENORPHINE
     Dosage: 1 MG (5 X 200 MICROG) IN DIVIDED DOSES OVER 10
     Route: 060
  6. ROPIVACAINE [Concomitant]
     Active Substance: ROPIVACAINE
     Dosage: 20 ML OF 0.375%. LATER, GIVEN 0.2% INFUSED AT 6 ML/HOUR
     Route: 037
  7. BUPRENORPHINE. [Suspect]
     Active Substance: BUPRENORPHINE
     Dosage: ONE HOUR FOLLOWING THE PROCEDUREUNK
     Route: 062
  8. PROPOFOL. [Concomitant]
     Active Substance: PROPOFOL
     Indication: SEDATION
     Dosage: A LOW-DOSE INFUSION
     Route: 050
  9. BUPRENORPHINE. [Suspect]
     Active Substance: BUPRENORPHINE
     Indication: ANALGESIC THERAPY
     Dosage: 300 MICROG; VIA THE FEMORAL NERVE CATHETER
     Route: 065

REACTIONS (2)
  - Depressed level of consciousness [Recovered/Resolved]
  - Respiratory depression [Recovered/Resolved]
